FAERS Safety Report 4767934-X (Version None)
Quarter: 2005Q3

REPORT INFORMATION
  Report Type: 
  Country: None (occurrence: None)
  Receive Date: 20050912
  Receipt Date: 20050826
  Transmission Date: 20060218
  Serious: Yes (Hospitalization)
  Sender: FDA-Public Use
  Company Number: 197475

PATIENT
  Age: 44 Year
  Sex: Female
  Weight: 90.7194 kg

DRUGS (4)
  1. AVONEX [Suspect]
     Indication: MULTIPLE SCLEROSIS
     Dosage: 30 UG;QW;IM; SEE IMAGE
     Route: 030
     Dates: start: 19990101, end: 20000101
  2. AVONEX [Suspect]
     Indication: MULTIPLE SCLEROSIS
     Dosage: 30 UG;QW;IM; SEE IMAGE
     Route: 030
     Dates: start: 20010101, end: 20040201
  3. AVONEX [Suspect]
     Indication: MULTIPLE SCLEROSIS
     Dosage: 30 UG;QW;IM; SEE IMAGE
     Route: 030
     Dates: start: 20040201
  4. CELEXA [Concomitant]

REACTIONS (23)
  - ARTHRALGIA [None]
  - BACK PAIN [None]
  - BRONCHOPNEUMONIA [None]
  - CHEST DISCOMFORT [None]
  - CHILLS [None]
  - CIRCULATORY COLLAPSE [None]
  - CONSTIPATION [None]
  - FATIGUE [None]
  - FLUID RETENTION [None]
  - GENERALISED OEDEMA [None]
  - HALLUCINATION [None]
  - HYPERHIDROSIS [None]
  - HYPERTHYROIDISM [None]
  - HYPOAESTHESIA [None]
  - INFLUENZA LIKE ILLNESS [None]
  - INSOMNIA [None]
  - MIDDLE INSOMNIA [None]
  - MUSCLE SPASMS [None]
  - OEDEMA PERIPHERAL [None]
  - SLEEP DISORDER [None]
  - URINARY TRACT INFECTION [None]
  - UTERINE ENLARGEMENT [None]
  - WEIGHT INCREASED [None]
